FAERS Safety Report 20709986 (Version 1)
Quarter: 2022Q2

REPORT INFORMATION
  Report Type: Report from Study
  Country: FR (occurrence: FR)
  Receive Date: 20220414
  Receipt Date: 20220414
  Transmission Date: 20220720
  Serious: Yes (Hospitalization)
  Sender: FDA-Public Use
  Company Number: FR-MYLANLABS-2022M1026770

PATIENT
  Age: 58 Year
  Sex: Female

DRUGS (6)
  1. BUSULFAN [Interacting]
     Active Substance: BUSULFAN
     Indication: B-cell lymphoma
     Dosage: 8 MILLIGRAM/KILOGRAM
     Route: 065
  2. BUSULFAN [Interacting]
     Active Substance: BUSULFAN
     Indication: Central nervous system lymphoma
  3. CYCLOPHOSPHAMIDE [Interacting]
     Active Substance: CYCLOPHOSPHAMIDE
     Indication: B-cell lymphoma
     Dosage: UNK
     Route: 065
  4. CYCLOPHOSPHAMIDE [Interacting]
     Active Substance: CYCLOPHOSPHAMIDE
     Indication: Central nervous system lymphoma
  5. THIOTEPA [Interacting]
     Active Substance: THIOTEPA
     Indication: B-cell lymphoma
     Dosage: UNK
     Route: 065
  6. THIOTEPA [Interacting]
     Active Substance: THIOTEPA
     Indication: Central nervous system lymphoma

REACTIONS (2)
  - Pulmonary arterial hypertension [Recovering/Resolving]
  - Drug interaction [Recovering/Resolving]
